FAERS Safety Report 14502136 (Version 2)
Quarter: 2018Q1

REPORT INFORMATION
  Report Type: Spontaneous
  Country: US (occurrence: US)
  Receive Date: 20180208
  Receipt Date: 20180219
  Transmission Date: 20180509
  Serious: Yes (Other)
  Sender: FDA-Public Use
  Company Number: US-009507513-1802USA002945

PATIENT

DRUGS (2)
  1. SINEMET [Suspect]
     Active Substance: CARBIDOPA\LEVODOPA
     Dosage: UNK
     Route: 048
  2. BELSOMRA [Suspect]
     Active Substance: SUVOREXANT
     Dosage: UNK
     Route: 048

REACTIONS (17)
  - Weight decreased [Unknown]
  - Upper respiratory tract infection [Unknown]
  - Constipation [Unknown]
  - Urinary tract infection [Unknown]
  - Ageusia [Unknown]
  - Middle insomnia [Unknown]
  - Dyskinesia [Unknown]
  - Micturition urgency [Unknown]
  - Diarrhoea [Unknown]
  - Asthenia [Unknown]
  - Urinary retention [Unknown]
  - Somnolence [Unknown]
  - Nausea [Unknown]
  - Sinusitis [Unknown]
  - Haematuria [Unknown]
  - Depression [Unknown]
  - Decreased appetite [Unknown]
